FAERS Safety Report 10725827 (Version 1)
Quarter: 2015Q1

REPORT INFORMATION
  Report Type: Spontaneous
  Country: US (occurrence: None)
  Receive Date: 20150116
  Receipt Date: 20150116
  Transmission Date: 20150721
  Serious: No
  Sender: FDA-Public Use
  Company Number: None

PATIENT
  Age: 9 Year
  Sex: Male

DRUGS (4)
  1. AFINITOR [Suspect]
     Active Substance: EVEROLIMUS
     Indication: BRAIN NEOPLASM BENIGN
     Route: 048
     Dates: start: 20130905
  2. TEGRETOL [Concomitant]
     Active Substance: CARBAMAZEPINE
  3. LEVOCARNITINE. [Concomitant]
     Active Substance: LEVOCARNITINE
  4. CARBAMAZEPINE. [Concomitant]
     Active Substance: CARBAMAZEPINE

REACTIONS (1)
  - Fatigue [None]

NARRATIVE: CASE EVENT DATE: 20150107
